FAERS Safety Report 8008082-5 (Version None)
Quarter: 2011Q4

REPORT INFORMATION
  Report Type: 
  Country: None (occurrence: None)
  Receive Date: 20111227
  Receipt Date: 20111221
  Transmission Date: 20120403
  Serious: Yes (Other)
  Sender: FDA-Public Use
  Company Number: PHHY2011US37569

PATIENT
  Sex: Female
  Weight: 46.259 kg

DRUGS (36)
  1. ULTRAM [Concomitant]
     Dosage: 500 MG, UNK
     Route: 048
  2. PREMARIN [Concomitant]
     Dosage: 0.625 MG, UNK
  3. LACTULOSE [Concomitant]
     Route: 048
  4. LEVOTHYROXINE SODIUM [Concomitant]
     Dosage: 25 UG, UNK
     Route: 048
  5. PRAVASTATIN [Concomitant]
  6. HYDROCODONE [Concomitant]
     Route: 048
  7. METHENAMINE TAB [Concomitant]
     Dosage: 0.5 G, UNK
     Route: 048
  8. VITAMIN E [Concomitant]
     Dosage: 200 U, UNK
     Route: 048
  9. CELEXA [Concomitant]
     Dosage: 10 MG, UNK
     Route: 048
  10. FEOSOL [Concomitant]
     Dosage: 45 MG, UNK
  11. GILENYA [Suspect]
     Indication: MULTIPLE SCLEROSIS
     Dosage: 0.5 MG, QD
     Route: 048
     Dates: start: 20110304
  12. RENOVA [Concomitant]
     Dosage: 0.05 %, UNK
  13. NASONEX [Concomitant]
  14. HYDROCORT [Concomitant]
     Dosage: 2.5 %, UNK
  15. WELLBUTRIN XL [Concomitant]
     Dosage: 150 MG, UNK
     Route: 048
  16. IMITREX [Concomitant]
     Dosage: 100 MG, UNK
     Route: 048
  17. VITAMIN D [Concomitant]
     Dosage: 5000 IU, UNK
     Route: 048
  18. VITAMIN C [Concomitant]
     Dosage: 500 MG, UNK
     Route: 048
  19. NORCO [Concomitant]
     Dosage: 10-325
     Route: 048
  20. CALTRATE +D [Concomitant]
     Route: 048
  21. NEURONTIN [Concomitant]
     Dosage: 800 MG, UNK
     Route: 048
  22. CLONAZEPAM [Concomitant]
     Dosage: 0.5 MG, UNK
     Route: 048
  23. COQ10 [Concomitant]
     Dosage: UNK UKN, UNK
  24. GLUCOSAMINE W/CHONDROITIN [Concomitant]
     Route: 048
  25. SENOKOT [Concomitant]
     Dosage: 8.6-50 MG, UNK
     Route: 048
  26. METHADONE HCL [Concomitant]
     Dosage: 10 MG, UNK
     Route: 048
  27. DESONIDE [Concomitant]
     Dosage: 0.5 %, UNK
  28. TRIAMCINOLONE ACETONIDE W/NYSTATIN [Concomitant]
     Dosage: 0.025 %, UNK
  29. CALCITONIN SALMON [Concomitant]
     Route: 048
  30. GILENYA [Suspect]
     Dosage: 0.5 MG, QOD
     Route: 048
     Dates: start: 20110516
  31. BETAMETHA [Concomitant]
     Dosage: 0.05 %, UNK
  32. NIFEREX [Concomitant]
     Dosage: UNK UKN, UNK
  33. VITAMIN B-12 [Concomitant]
     Dosage: 1000 UG, UNK
     Route: 030
  34. FERROUS SULFATE TAB [Concomitant]
  35. SACCHAROMYCES BOULARDII [Concomitant]
     Dosage: 250 MG, UNK
     Route: 048
  36. RESTASIS [Concomitant]
     Dosage: 0.05 %, UNK
     Route: 047

REACTIONS (12)
  - LIPASE INCREASED [None]
  - DYSPNOEA [None]
  - FALL [None]
  - HAEMOGLOBIN DECREASED [None]
  - WEIGHT DECREASED [None]
  - FATIGUE [None]
  - MYALGIA [None]
  - MIGRAINE [None]
  - PAIN [None]
  - DECREASED APPETITE [None]
  - ABDOMINAL PAIN UPPER [None]
  - DIZZINESS [None]
